FAERS Safety Report 6564942-3 (Version None)
Quarter: 2010Q1

REPORT INFORMATION
  Report Type: 
  Country: None (occurrence: None)
  Receive Date: 20100201
  Receipt Date: 20100122
  Transmission Date: 20100710
  Serious: Yes (Other)
  Sender: FDA-Public Use
  Company Number: DE-TEVA-222238ISR

PATIENT
  Age: 71 Year
  Sex: Female

DRUGS (8)
  1. ALENDRONIC ACID [Suspect]
     Indication: OSTEOPOROSIS
     Route: 048
     Dates: start: 20040601, end: 20091101
  2. LEFLUNOMIDE [Concomitant]
     Route: 048
  3. PREDNISOLONE [Concomitant]
     Route: 048
  4. LISINOPRIL [Concomitant]
     Route: 048
  5. METOPROLOL [Concomitant]
     Route: 048
  6. IDEOS KAUTABLETTEN (COLECALCIFEROL/CALCIUM CARBONATE) [Concomitant]
     Route: 048
  7. GABAPENTIN [Concomitant]
     Route: 048
  8. FENTANYL [Concomitant]
     Route: 003

REACTIONS (1)
  - OSTEONECROSIS [None]
